FAERS Safety Report 14746755 (Version 1)
Quarter: 2018Q2

REPORT INFORMATION
  Report Type: Spontaneous
  Country: US (occurrence: US)
  Receive Date: 20180411
  Receipt Date: 20180411
  Transmission Date: 20180711
  Serious: Yes (Other)
  Sender: FDA-Public Use
  Company Number: US-GLAXOSMITHKLINE-US2018GSK061687

PATIENT
  Age: 10 Year
  Sex: Male

DRUGS (5)
  1. QUETIAPINE. [Suspect]
     Active Substance: QUETIAPINE
     Indication: ABNORMAL BEHAVIOUR
  2. DOXEPIN [Suspect]
     Active Substance: DOXEPIN
     Indication: ABNORMAL BEHAVIOUR
  3. DEXMETHYLPHENIDATE [Suspect]
     Active Substance: DEXMETHYLPHENIDATE HYDROCHLORIDE
     Indication: ABNORMAL BEHAVIOUR
  4. GUANFACINE. [Suspect]
     Active Substance: GUANFACINE
     Indication: ABNORMAL BEHAVIOUR
  5. LAMOTRIGINE. [Suspect]
     Active Substance: LAMOTRIGINE
     Indication: ABNORMAL BEHAVIOUR

REACTIONS (7)
  - Status epilepticus [Unknown]
  - Seizure [Unknown]
  - Pyrexia [Unknown]
  - Brugada syndrome [Unknown]
  - Ventricular tachycardia [Unknown]
  - Multiple organ dysfunction syndrome [Unknown]
  - Transaminases increased [Unknown]
